FAERS Safety Report 13393770 (Version 1)
Quarter: 2017Q1

REPORT INFORMATION
  Report Type: Spontaneous
  Country: US (occurrence: US)
  Receive Date: 20170331
  Receipt Date: 20170331
  Transmission Date: 20170429
  Serious: Yes (Other)
  Sender: FDA-Public Use
  Company Number: US-SAOL THERAPEUTICS-0700920840

PATIENT
  Age: 50 Year
  Sex: Male

DRUGS (7)
  1. LIORESAL [Suspect]
     Active Substance: BACLOFEN
     Dosage: 140 ?G, \DAY
     Route: 037
  2. BACLOFEN. [Suspect]
     Active Substance: BACLOFEN
     Dosage: 80 MG, \DAY
  3. LIORESAL [Suspect]
     Active Substance: BACLOFEN
     Dosage: 190 ?G, \DAY
     Route: 037
     Dates: start: 20150416
  4. BACLOFEN. [Suspect]
     Active Substance: BACLOFEN
     Dosage: 20 MG, \DAY
     Route: 048
  5. BACLOFEN. [Suspect]
     Active Substance: BACLOFEN
     Dosage: 12.6 ?G, \DAY
     Route: 037
  6. BACLOFEN. [Suspect]
     Active Substance: BACLOFEN
     Dosage: 160.2 ?G, \DAY
     Route: 037
  7. BACLOFEN. [Suspect]
     Active Substance: BACLOFEN
     Dosage: 385.3 ?G, \DAY
     Route: 037

REACTIONS (18)
  - Fall [Recovered/Resolved]
  - Medical device site inflammation [Recovered/Resolved]
  - Drug withdrawal syndrome [Unknown]
  - Back pain [Recovered/Resolved]
  - Post lumbar puncture syndrome [Recovered/Resolved]
  - Discomfort [Unknown]
  - Underdose [Unknown]
  - Therapeutic response unexpected [Unknown]
  - Medical device site swelling [Recovered/Resolved]
  - Pruritus [Recovering/Resolving]
  - Therapy non-responder [Unknown]
  - Muscle spasticity [Unknown]
  - Fatigue [Unknown]
  - Hypertonia [Recovered/Resolved]
  - Pain [Unknown]
  - Paraesthesia [Unknown]
  - Hypotonia [Recovered/Resolved]
  - Muscle spasms [Unknown]

NARRATIVE: CASE EVENT DATE: 2014
